FAERS Safety Report 6871631-4 (Version None)
Quarter: 2010Q3

REPORT INFORMATION
  Report Type: 
  Country: None (occurrence: None)
  Receive Date: 20100723
  Receipt Date: 20100712
  Transmission Date: 20110219
  Serious: Yes (Other)
  Sender: FDA-Public Use
  Company Number: US-PFIZER INC-2009300607

PATIENT
  Sex: Female

DRUGS (17)
  1. CHANTIX [Suspect]
     Indication: SMOKING CESSATION THERAPY
     Dosage: STARTER PACK
     Route: 048
     Dates: start: 20070604, end: 20070625
  2. ACETAMINOPHEN AND HYDROCODONE BITARTRATE [Concomitant]
     Indication: PAIN
     Dosage: UNK
     Dates: start: 20050101, end: 20090301
  3. PROPOXYPHENE HCL [Concomitant]
     Indication: PAIN
     Dosage: UNK
     Dates: start: 20060801, end: 20090801
  4. SYNTHROID [Concomitant]
     Indication: HYPOTHYROIDISM
     Dosage: UNK
     Dates: start: 20001001, end: 20081001
  5. ALBUTEROL [Concomitant]
     Indication: ASTHMA
     Dosage: UNK
     Dates: start: 20051201, end: 20091101
  6. ALBUTEROL [Concomitant]
     Indication: BRONCHITIS
  7. WELLBUTRIN [Concomitant]
     Indication: DEPRESSION
     Dosage: UNK
     Dates: start: 20060401, end: 20091001
  8. WELLBUTRIN [Concomitant]
     Indication: ANXIETY
  9. MIRALAX [Concomitant]
     Indication: CONSTIPATION
     Dosage: UNK
     Dates: start: 20060301, end: 20090301
  10. NEXIUM [Concomitant]
     Indication: GASTROOESOPHAGEAL REFLUX DISEASE
     Dosage: UNK
     Dates: start: 20060801, end: 20090401
  11. XANAX [Concomitant]
     Indication: ANXIETY
     Dosage: UNK
     Dates: start: 19870201, end: 20091001
  12. XANAX [Concomitant]
     Indication: DEPRESSION
  13. XANAX [Concomitant]
     Indication: PANIC DISORDER
  14. XANAX [Concomitant]
     Indication: ACUTE STRESS DISORDER
  15. XANAX [Concomitant]
     Indication: INSOMNIA
  16. ZOLPIDEM [Concomitant]
     Indication: INSOMNIA
     Dosage: UNK
     Dates: start: 20070301, end: 20070901
  17. ROZEREM [Concomitant]
     Indication: INSOMNIA
     Dosage: UNK
     Dates: start: 20060201, end: 20070701

REACTIONS (7)
  - ACUTE STRESS DISORDER [None]
  - ANXIETY [None]
  - DEPRESSION [None]
  - PANIC DISORDER [None]
  - PARANOIA [None]
  - SOCIAL FEAR [None]
  - SUICIDAL IDEATION [None]
